FAERS Safety Report 7492017-8 (Version None)
Quarter: 2011Q2

REPORT INFORMATION
  Report Type: 
  Country: None (occurrence: None)
  Receive Date: 20110519
  Receipt Date: 20110510
  Transmission Date: 20111010
  Serious: Yes (Other)
  Sender: FDA-Public Use
  Company Number: RS-ASTRAZENECA-2011SE27385

PATIENT
  Age: 58 Year
  Sex: Female
  Weight: 70 kg

DRUGS (5)
  1. FELODIPINE [Suspect]
     Indication: ESSENTIAL HYPERTENSION
     Route: 048
     Dates: start: 20110228, end: 20110306
  2. ACETYL SALICYLIC ACID USP BAT [Concomitant]
     Route: 048
     Dates: start: 20091029
  3. FELODIPINE [Suspect]
     Indication: HYPERTENSIVE HEART DISEASE
     Route: 048
     Dates: start: 20110228, end: 20110306
  4. FELODIPINE [Suspect]
     Indication: MITRAL VALVE INCOMPETENCE
     Route: 048
     Dates: start: 20110228, end: 20110306
  5. RAMIPRIL [Concomitant]
     Route: 050
     Dates: start: 20091029

REACTIONS (3)
  - HEADACHE [None]
  - ANGINA PECTORIS [None]
  - JOINT SWELLING [None]
